FAERS Safety Report 5761411-5 (Version None)
Quarter: 2008Q2

REPORT INFORMATION
  Report Type: 
  Country: None (occurrence: None)
  Receive Date: 20080606
  Receipt Date: 20080529
  Transmission Date: 20081010
  Serious: Yes (Other)
  Sender: FDA-Public Use
  Company Number: US-JNJFOC-20080407012

PATIENT
  Sex: Female
  Weight: 86.64 kg

DRUGS (14)
  1. INVEGA [Suspect]
     Indication: SCHIZOAFFECTIVE DISORDER
     Route: 048
  2. GABAPENTIN [Concomitant]
     Indication: EPILEPSY
     Route: 048
  3. LAMICTAL [Concomitant]
     Indication: EPILEPSY
  4. OLANZAPINE [Concomitant]
     Route: 048
  5. OLANZAPINE [Concomitant]
     Route: 048
  6. ARIPIPRAZOLE [Concomitant]
     Route: 048
  7. SENNA [Concomitant]
     Route: 048
  8. DOCUSATE SODIUM [Concomitant]
     Route: 048
  9. PAROXETINE HCL [Concomitant]
     Route: 048
  10. LORAZEPAM [Concomitant]
     Dosage: 2 INJECTIONS EVERY 4 HOURS AS NEEDED.
     Route: 030
  11. LAMOTRIGINE [Concomitant]
     Route: 048
  12. LEVOTHYROXINE SODIUM [Concomitant]
     Route: 048
  13. MULITIVITAMIN [Concomitant]
     Route: 048
  14. LATANOPROST [Concomitant]
     Route: 047

REACTIONS (1)
  - CONVULSION [None]
